FAERS Safety Report 11291458 (Version 1)
Quarter: 2015Q3

REPORT INFORMATION
  Report Type: Spontaneous
  Country: CN (occurrence: CN)
  Receive Date: 20150722
  Receipt Date: 20150722
  Transmission Date: 20151125
  Serious: Yes (Hospitalization)
  Sender: FDA-Public Use
  Company Number: CN-VIIV HEALTHCARE LIMITED-CN2015102667

PATIENT
  Age: 26 Year
  Sex: Female

DRUGS (2)
  1. VIREAD [Suspect]
     Active Substance: TENOFOVIR DISOPROXIL FUMARATE
     Indication: HEPATITIS B
     Dosage: UNK
     Route: 065
     Dates: start: 20140705
  2. LAMIVUDINE. [Suspect]
     Active Substance: LAMIVUDINE
     Indication: HEPATITIS B
     Dosage: UNK
     Route: 065
     Dates: start: 20131022, end: 20140705

REACTIONS (9)
  - Blood iron decreased [Unknown]
  - Blood creatine phosphokinase MB increased [Unknown]
  - Alanine aminotransferase increased [Unknown]
  - Abdominal distension [Unknown]
  - Decreased appetite [Unknown]
  - Nausea [Unknown]
  - Hepatitis B DNA increased [Unknown]
  - Fatigue [Unknown]
  - Aspartate aminotransferase increased [Unknown]

NARRATIVE: CASE EVENT DATE: 2014
